FAERS Safety Report 20357438 (Version 1)
Quarter: 2022Q1

REPORT INFORMATION
  Report Type: Spontaneous
  Country: US (occurrence: None)
  Receive Date: 20220120
  Receipt Date: 20220120
  Transmission Date: 20220423
  Serious: No
  Sender: FDA-Public Use
  Company Number: None

PATIENT

DRUGS (2)
  1. FLAVOXATE HYDROCHLORIDE [Suspect]
     Active Substance: FLAVOXATE HYDROCHLORIDE
     Route: 048
  2. FLUVOXAMINE MALEATE [Suspect]
     Active Substance: FLUVOXAMINE MALEATE
     Route: 048

REACTIONS (9)
  - Transcription medication error [None]
  - Intercepted product administration error [None]
  - Cardiac failure acute [None]
  - Hypertensive crisis [None]
  - Wrong product administered [None]
  - Toxicity to various agents [None]
  - Product communication issue [None]
  - Product name confusion [None]
  - Product name confusion [None]
